FAERS Safety Report 9815296 (Version 1)
Quarter: 2014Q1

REPORT INFORMATION
  Report Type: Spontaneous
  Country: IR (occurrence: IR)
  Receive Date: 20140114
  Receipt Date: 20140114
  Transmission Date: 20141002
  Serious: Yes (Other)
  Sender: FDA-Public Use
  Company Number: IR-AMGEN-IRNSP2014001358

PATIENT
  Sex: 0

DRUGS (1)
  1. NEUPOGEN [Suspect]
     Indication: SPINAL CORD INJURY
     Dosage: 5 MUG/KG PER DAY FOR 5 DAYS
     Route: 058

REACTIONS (9)
  - Autonomic dysreflexia [Recovered/Resolved]
  - Muscle spasticity [Recovered/Resolved]
  - Neuralgia [Recovered/Resolved]
  - Palpitations [Recovered/Resolved]
  - Nausea [Recovered/Resolved]
  - Chills [Recovered/Resolved]
  - Pyrexia [Recovered/Resolved]
  - Bone pain [Recovered/Resolved]
  - Rash [Recovered/Resolved]
